FAERS Safety Report 15850544 (Version 1)
Quarter: 2019Q1

REPORT INFORMATION
  Report Type: Spontaneous
  Country: US (occurrence: US)
  Receive Date: 20190121
  Receipt Date: 20190121
  Transmission Date: 20190417
  Serious: No
  Sender: FDA-Public Use
  Company Number: US-PFIZER INC-2019024183

PATIENT
  Age: 51 Year
  Sex: Female
  Weight: 89.81 kg

DRUGS (1)
  1. GABAPENTIN. [Suspect]
     Active Substance: GABAPENTIN
     Dosage: 1600 MG, 4X/DAY

REACTIONS (2)
  - Pain [Unknown]
  - Overdose [Unknown]
